FAERS Safety Report 11896816 (Version 2)
Quarter: 2016Q1

REPORT INFORMATION
  Report Type: Report from Study
  Country: ES (occurrence: ES)
  Receive Date: 20160107
  Receipt Date: 20160111
  Transmission Date: 20160526
  Serious: Yes (Hospitalization, Other)
  Sender: FDA-Public Use
  Company Number: ES-ABBVIE-16P-144-1531186-00

PATIENT
  Age: 43 Year
  Sex: Female

DRUGS (1)
  1. DUODOPA [Suspect]
     Active Substance: CARBIDOPA\LEVODOPA
     Indication: PARKINSON^S DISEASE
     Dosage: 16H/DAY
     Route: 065
     Dates: start: 20150708

REACTIONS (4)
  - Nerve block [Unknown]
  - Cerebral thrombosis [Recovering/Resolving]
  - Hypertensive crisis [Recovering/Resolving]
  - Blood pressure systolic increased [Not Recovered/Not Resolved]

NARRATIVE: CASE EVENT DATE: 201601
